FAERS Safety Report 5638315-1 (Version None)
Quarter: 2008Q1

REPORT INFORMATION
  Report Type: 
  Country: None (occurrence: None)
  Receive Date: 20080222
  Receipt Date: 20080107
  Transmission Date: 20080703
  Serious: Yes (Hospitalization)
  Sender: FDA-Public Use
  Company Number: 2008AL000910

PATIENT
  Age: 49 Year
  Sex: Male

DRUGS (2)
  1. TRAMADOL HCL [Suspect]
     Dosage: 100 MG; X1; PO
     Route: 048
  2. MORPHINE [Concomitant]

REACTIONS (7)
  - DRUG INTERACTION [None]
  - ERYTHEMA [None]
  - GRAND MAL CONVULSION [None]
  - HYPERHIDROSIS [None]
  - HYPERTENSION [None]
  - SEROTONIN SYNDROME [None]
  - TACHYCARDIA [None]
